FAERS Safety Report 20736213 (Version 1)
Quarter: 2022Q2

REPORT INFORMATION
  Report Type: Spontaneous
  Country: US (occurrence: None)
  Receive Date: 20220421
  Receipt Date: 20220421
  Transmission Date: 20220720
  Serious: Yes (Life-Threatening)
  Sender: FDA-Public Use
  Company Number: None

PATIENT
  Age: 49 Year
  Sex: Female
  Weight: 87 kg

DRUGS (1)
  1. ENTRECTINIB [Suspect]
     Active Substance: ENTRECTINIB
     Indication: Lung adenocarcinoma
     Dosage: FREQUENCY : DAILY;?
     Route: 048
     Dates: start: 20200724, end: 20220420

REACTIONS (3)
  - Ascites [None]
  - Oedema [None]
  - Cardiac failure congestive [None]

NARRATIVE: CASE EVENT DATE: 20220420
